FAERS Safety Report 8607979-2 (Version None)
Quarter: 2012Q3

REPORT INFORMATION
  Report Type: 
  Country: None (occurrence: None)
  Receive Date: 20120423
  Receipt Date: 20070808
  Transmission Date: 20120928
  Serious: Yes (Hospitalization)
  Sender: FDA-Public Use
  Company Number: PHBS2007US21755

PATIENT
  Sex: Male

DRUGS (1)
  1. EXJADE [Suspect]
     Dosage: 250 MG

REACTIONS (3)
  - NAUSEA [None]
  - DIARRHOEA [None]
  - ABDOMINAL DISCOMFORT [None]
